FAERS Safety Report 9815869 (Version 4)
Quarter: 2014Q1

REPORT INFORMATION
  Report Type: Report from Study
  Country: US (occurrence: US)
  Receive Date: 20140114
  Receipt Date: 20140320
  Transmission Date: 20141002
  Serious: Yes (Death, Life-Threatening, Other)
  Sender: FDA-Public Use
  Company Number: US-SA-2014SA004704

PATIENT
  Age: 50 Year
  Sex: Female

DRUGS (4)
  1. AUBAGIO [Suspect]
     Indication: RELAPSING-REMITTING MULTIPLE SCLEROSIS
     Route: 048
     Dates: start: 201304, end: 20131215
  2. TRAMADOL [Concomitant]
     Indication: NEURALGIA
     Dosage: 50 MG Q4HRS/PRN
     Route: 048
     Dates: start: 2012, end: 20131215
  3. PREGABALIN [Concomitant]
     Indication: NEURALGIA
     Route: 048
     Dates: start: 2012, end: 20131215
  4. FLEXERIL [Concomitant]
     Indication: MUSCLE SPASTICITY
     Dosage: 5-10 MG QID/PRN
     Route: 048
     Dates: start: 2012, end: 20131215

REACTIONS (7)
  - Death [Fatal]
  - Diabetic coma [Unknown]
  - Electrolyte imbalance [Unknown]
  - Road traffic accident [Unknown]
  - Vomiting [Unknown]
  - Malaise [Unknown]
  - Multiple sclerosis [Unknown]
